FAERS Safety Report 23215898 (Version 2)
Quarter: 2023Q4

REPORT INFORMATION
  Report Type: Spontaneous
  Country: JP (occurrence: JP)
  Receive Date: 20231122
  Receipt Date: 20231221
  Transmission Date: 20240110
  Serious: Yes (Other)
  Sender: FDA-Public Use
  Company Number: JP-CHUGAI-2023040123

PATIENT
  Age: 50 Year
  Sex: Male

DRUGS (5)
  1. CAPECITABINE [Suspect]
     Active Substance: CAPECITABINE
     Indication: Anal cancer
     Dosage: 8 COURSES
     Route: 048
  2. AVASTIN [Suspect]
     Active Substance: BEVACIZUMAB
     Indication: Anal cancer
     Dosage: 2 COURSES
  3. OXALIPLATIN [Concomitant]
     Active Substance: OXALIPLATIN
     Indication: Anal cancer
     Dosage: 8 COURSES
  4. TIPIRACIL HYDROCHLORIDE\TRIFLURIDINE [Concomitant]
     Active Substance: TIPIRACIL HYDROCHLORIDE\TRIFLURIDINE
     Indication: Anal cancer
     Dosage: 2 COURSES
  5. REGORAFENIB [Concomitant]
     Active Substance: REGORAFENIB
     Dosage: 4 COURSES

REACTIONS (2)
  - Metastases to peritoneum [Recovering/Resolving]
  - Off label use [Unknown]
